FAERS Safety Report 8153792-2 (Version None)
Quarter: 2012Q1

REPORT INFORMATION
  Report Type: 
  Country: None (occurrence: None)
  Receive Date: 20120221
  Receipt Date: 20120214
  Transmission Date: 20120608
  Serious: Yes (Hospitalization)
  Sender: FDA-Public Use
  Company Number: FR-GLAXOSMITHKLINE-B0781404A

PATIENT
  Sex: Female

DRUGS (6)
  1. OLANZAPINE [Concomitant]
     Indication: PRODUCT USED FOR UNKNOWN INDICATION
     Route: 065
  2. LAMICTAL [Suspect]
     Indication: PRODUCT USED FOR UNKNOWN INDICATION
     Route: 048
     Dates: start: 20111128, end: 20111230
  3. VALPROMIDE [Concomitant]
     Indication: PRODUCT USED FOR UNKNOWN INDICATION
     Route: 065
  4. AMOXICILLIN [Concomitant]
     Indication: ODYNOPHAGIA
     Dates: start: 20111201
  5. PYOSTACINE [Concomitant]
     Indication: ODYNOPHAGIA
     Dates: start: 20111223
  6. CEFPODOXIME PROXETIL [Concomitant]
     Indication: ODYNOPHAGIA
     Dates: start: 20111201, end: 20111223

REACTIONS (11)
  - MUSCULOSKELETAL PAIN [None]
  - DERMATITIS EXFOLIATIVE [None]
  - HEPATOCELLULAR INJURY [None]
  - INFLAMMATION [None]
  - LYMPHADENOPATHY [None]
  - TOXIC SKIN ERUPTION [None]
  - ODYNOPHAGIA [None]
  - CONJUNCTIVAL HYPERAEMIA [None]
  - PYREXIA [None]
  - FACE OEDEMA [None]
  - COUGH [None]
